FAERS Safety Report 9233811 (Version 1)
Quarter: 2013Q2

REPORT INFORMATION
  Report Type: Spontaneous
  Country: US (occurrence: US)
  Receive Date: 20130416
  Receipt Date: 20130416
  Transmission Date: 20140414
  Serious: No
  Sender: FDA-Public Use
  Company Number: US-BANPHARM-20120032

PATIENT
  Age: 66 Year
  Sex: Female
  Weight: 82.54 kg

DRUGS (4)
  1. ALEVE LIQUID GELS 220 MG [Suspect]
     Indication: ARTHROSCOPIC SURGERY
     Dosage: 1 DF, ONCE
     Route: 048
     Dates: start: 201204, end: 201204
  2. PERCOSET [Concomitant]
  3. DIOVAN [Concomitant]
  4. UNIDENTIFED [Suspect]

REACTIONS (1)
  - Drug effect incomplete [Unknown]
